FAERS Safety Report 25699934 (Version 3)
Quarter: 2025Q4

REPORT INFORMATION
  Report Type: Report from Study
  Country: JP (occurrence: JP)
  Receive Date: 20250819
  Receipt Date: 20251120
  Transmission Date: 20260117
  Serious: Yes (Hospitalization)
  Sender: AMGEN
  Company Number: JP-AMGEN-JPNSP2025164991

PATIENT
  Age: 75 Year
  Sex: Male
  Weight: 73 kg

DRUGS (5)
  1. INEBILIZUMAB [Suspect]
     Active Substance: INEBILIZUMAB
     Indication: Neuromyelitis optica spectrum disorder
     Dosage: 300 MILLIGRAM
     Route: 040
     Dates: start: 20230723
  2. INEBILIZUMAB [Suspect]
     Active Substance: INEBILIZUMAB
     Dosage: 300 MILLIGRAM
     Route: 040
     Dates: start: 20230804
  3. INEBILIZUMAB [Suspect]
     Active Substance: INEBILIZUMAB
     Dosage: 300 MILLIGRAM
     Route: 040
     Dates: start: 20240216
  4. PREDONINE [Concomitant]
     Active Substance: PREDNISOLONE
     Indication: Neuromyelitis optica spectrum disorder
     Dosage: UNK
     Dates: start: 20230721
  5. LANSOPRAZOLE [Concomitant]
     Active Substance: LANSOPRAZOLE
     Indication: Neuromyelitis optica spectrum disorder
     Dosage: UNK
     Dates: start: 20230721

REACTIONS (2)
  - Lip and/or oral cavity cancer [Recovered/Resolved]
  - Off label use [Unknown]
